FAERS Safety Report 12940269 (Version 2)
Quarter: 2016Q4

REPORT INFORMATION
  Report Type: Spontaneous
  Country: JP (occurrence: JP)
  Receive Date: 20161115
  Receipt Date: 20161214
  Transmission Date: 20170207
  Serious: Yes (Death, Hospitalization)
  Sender: FDA-Public Use
  Company Number: JP-ACTELION-A-CH2016-140257

PATIENT
  Age: 66 Year
  Sex: Female

DRUGS (12)
  1. ALLOID G [Concomitant]
     Active Substance: SODIUM ALGINATE
  2. FRANDOL [Concomitant]
     Active Substance: ISOSORBIDE DINITRATE
  3. OXYGEN. [Concomitant]
     Active Substance: OXYGEN
  4. FERROMIA [Concomitant]
     Active Substance: FERROUS CITRATE
  5. LANSOPRAZOLE. [Concomitant]
     Active Substance: LANSOPRAZOLE
  6. OPSUMIT [Suspect]
     Active Substance: MACITENTAN
     Indication: PULMONARY ARTERIAL HYPERTENSION
     Dosage: 10 MG, OD
     Route: 048
     Dates: start: 20160720, end: 20161026
  7. DIART [Concomitant]
     Active Substance: AZOSEMIDE
  8. WARFARIN POTASSIUM [Concomitant]
     Active Substance: WARFARIN POTASSIUM
  9. FLUITRAN [Concomitant]
     Active Substance: TRICHLORMETHIAZIDE
  10. FUROSEMIDE. [Concomitant]
     Active Substance: FUROSEMIDE
  11. FEBURIC [Concomitant]
     Active Substance: FEBUXOSTAT
  12. MUCOSOLVAN L [Concomitant]
     Active Substance: AMBROXOL HYDROCHLORIDE

REACTIONS (6)
  - Acute respiratory failure [Fatal]
  - Pulmonary arterial hypertension [Fatal]
  - Condition aggravated [Fatal]
  - Hepatic function abnormal [Recovered/Resolved]
  - Nausea [Recovered/Resolved]
  - Aspartate aminotransferase increased [Recovered/Resolved]

NARRATIVE: CASE EVENT DATE: 20160720
